FAERS Safety Report 9196088 (Version 2)
Quarter: 2016Q2

REPORT INFORMATION
  Report Type: Spontaneous
  Country: IL (occurrence: IL)
  Receive Date: 20130328
  Receipt Date: 20160513
  Transmission Date: 20160815
  Serious: Yes (Other)
  Sender: FDA-Public Use
  Company Number: IL-RANBAXY-2013US-66468

PATIENT
  Age: 67 Year
  Sex: Female

DRUGS (1)
  1. NEURONTIN [Suspect]
     Active Substance: GABAPENTIN
     Indication: NEUROPATHY PERIPHERAL
     Dosage: 200 MG, BID
     Route: 065

REACTIONS (4)
  - Extraocular muscle paresis [Recovered/Resolved]
  - Mastication disorder [Recovered/Resolved]
  - Facial paresis [Recovered/Resolved]
  - Fatigue [Recovered/Resolved]
